FAERS Safety Report 7136817-2 (Version None)
Quarter: 2010Q4

REPORT INFORMATION
  Report Type: 
  Country: None (occurrence: None)
  Receive Date: 20101206
  Receipt Date: 20100408
  Transmission Date: 20110411
  Serious: Yes (Death, Hospitalization)
  Sender: FDA-Public Use
  Company Number: US-ACTELION-A-NJ2008-19951

PATIENT
  Sex: Female

DRUGS (1)
  1. TRACLEER [Suspect]
     Indication: PULMONARY ARTERIAL HYPERTENSION
     Dosage: UNK
     Route: 048
     Dates: start: 20080124, end: 20100402

REACTIONS (6)
  - BRONCHITIS [None]
  - CHEST DISCOMFORT [None]
  - DEATH [None]
  - DYSPNOEA [None]
  - PRODUCTIVE COUGH [None]
  - PYREXIA [None]
